FAERS Safety Report 6929401-4 (Version None)
Quarter: 2010Q3

REPORT INFORMATION
  Report Type: 
  Country: None (occurrence: None)
  Receive Date: 20100818
  Receipt Date: 20100810
  Transmission Date: 20110219
  Serious: Yes (Other)
  Sender: FDA-Public Use
  Company Number: US-BIOGENIDEC-2008BI002461

PATIENT
  Age: 55 Year
  Sex: Female

DRUGS (2)
  1. AVONEX [Suspect]
     Indication: MULTIPLE SCLEROSIS
     Route: 030
     Dates: start: 20050901
  2. AVONEX [Suspect]
     Route: 030
     Dates: start: 20030619, end: 20050901

REACTIONS (1)
  - BREAST CANCER STAGE I [None]
